FAERS Safety Report 4860896-6 (Version None)
Quarter: 2005Q4

REPORT INFORMATION
  Report Type: 
  Country: None (occurrence: None)
  Receive Date: 20051216
  Receipt Date: 20051205
  Transmission Date: 20060501
  Serious: Yes (Hospitalization)
  Sender: FDA-Public Use
  Company Number: 2005133119

PATIENT
  Age: 70 Year
  Sex: Female

DRUGS (6)
  1. LYRICA [Suspect]
     Indication: NEURALGIA
     Dosage: 150 MG (1 D), ORAL
     Route: 048
     Dates: start: 20040101
  2. OXYCONTIN [Concomitant]
  3. PARACETAMOL (PARACETAMOL) [Concomitant]
  4. DRUG, UNSPECIFIED (DRUG, UNSPECIFIED) [Concomitant]
  5. NEURONTIN [Concomitant]
  6. TRIPTYL (AMITRIPTYLINE HYDROCHLORIDE) [Concomitant]

REACTIONS (2)
  - BLOOD CREATININE INCREASED [None]
  - DIALYSIS [None]
